FAERS Safety Report 11533274 (Version 1)
Quarter: 2015Q3

REPORT INFORMATION
  Report Type: Spontaneous
  Country: US (occurrence: US)
  Receive Date: 20150921
  Receipt Date: 20150921
  Transmission Date: 20151125
  Serious: No
  Sender: FDA-Public Use
  Company Number: US-ASTRAZENECA-2015SE88551

PATIENT
  Sex: Female

DRUGS (1)
  1. SYMBICORT [Suspect]
     Active Substance: BUDESONIDE\FORMOTEROL FUMARATE DIHYDRATE
     Dosage: 80/4.5 MCG 1 PUFF IN THE MORNING AND 1 PUFF IN THE EVENING
     Route: 055

REACTIONS (5)
  - Expired product administered [Unknown]
  - Malaise [Unknown]
  - Drug ineffective [Unknown]
  - Chest discomfort [Unknown]
  - Ear pain [Unknown]
